FAERS Safety Report 16930834 (Version 1)
Quarter: 2019Q4

REPORT INFORMATION
  Report Type: Spontaneous
  Country: US (occurrence: US)
  Receive Date: 20191017
  Receipt Date: 20191017
  Transmission Date: 20200122
  Serious: No
  Sender: FDA-Public Use
  Company Number: None

PATIENT
  Age: 76 Year
  Sex: Female
  Weight: 49.44 kg

DRUGS (1)
  1. CAPECITABINE. [Suspect]
     Active Substance: CAPECITABINE
     Indication: GASTRIC CANCER
     Dosage: ?          OTHER FREQUENCY:BID M-F (RADIATION;?
     Route: 048
     Dates: start: 20190907, end: 20191010

REACTIONS (4)
  - Weight decreased [None]
  - Decreased appetite [None]
  - Fatigue [None]
  - Abdominal pain [None]
